FAERS Safety Report 8816783 (Version 1)
Quarter: 2012Q4

REPORT INFORMATION
  Report Type: Spontaneous
  Country: JP (occurrence: None)
  Receive Date: 20121001
  Receipt Date: 20121001
  Transmission Date: 20130627
  Serious: Yes (Other)
  Sender: FDA-Public Use
  Company Number: DSA_59855_2012

PATIENT

DRUGS (5)
  1. FLUOROURACIL (FLUOROURACIL) [Suspect]
     Dosage: 1000 mg/m2 intravenous
     Route: 042
  2. FLUOROURACIL (FLUOROURACIL) [Suspect]
     Dosage: df intravenous
     Route: 042
  3. MITOMYCIN [Suspect]
     Dosage: 10 mg/m2
  4. MITOMYCIN [Suspect]
     Dosage: df
  5. THERAPEUTIC RADIOPHARMACEUTICALS (THERAPEUTIC RADIOPHARMACEUTICALS) [Suspect]
     Dosage: 1.8 gy daily

REACTIONS (1)
  - Neutropenia [None]
